FAERS Safety Report 17206471 (Version 2)
Quarter: 2021Q1

REPORT INFORMATION
  Report Type: Spontaneous
  Country: US (occurrence: US)
  Receive Date: 20191227
  Receipt Date: 20210317
  Transmission Date: 20210419
  Serious: No
  Sender: FDA-Public Use
  Company Number: US-VIFOR (INTERNATIONAL) INC.-VIT-2019-15932

PATIENT
  Age: 84 Year
  Sex: Male

DRUGS (13)
  1. GABAPENTIN. [Concomitant]
     Active Substance: GABAPENTIN
  2. METOPROL TAR [Concomitant]
  3. FOLIC ACID. [Concomitant]
     Active Substance: FOLIC ACID
  4. VELTASSA [Suspect]
     Active Substance: PATIROMER
     Indication: HYPERKALAEMIA
     Route: 048
     Dates: start: 20190201
  5. NATEGLINIDE. [Concomitant]
     Active Substance: NATEGLINIDE
  6. TRADJENTA [Concomitant]
     Active Substance: LINAGLIPTIN
  7. VELTASSA [Suspect]
     Active Substance: PATIROMER
     Route: 048
  8. ELIQUIS [Concomitant]
     Active Substance: APIXABAN
  9. WARFARIN [Concomitant]
     Active Substance: WARFARIN
  10. DOK [Concomitant]
     Active Substance: DOCUSATE SODIUM
  11. SODIUM BI CAR [Concomitant]
  12. VITAMIN D [Concomitant]
     Active Substance: VITAMIN D NOS
  13. ATORVASTATIN [Concomitant]
     Active Substance: ATORVASTATIN

REACTIONS (3)
  - No adverse event [Unknown]
  - Inability to afford medication [Unknown]
  - Therapy interrupted [Not Recovered/Not Resolved]
